FAERS Safety Report 5170807-4 (Version None)
Quarter: 2006Q4

REPORT INFORMATION
  Report Type: 
  Country: None (occurrence: None)
  Receive Date: 20061206
  Receipt Date: 20061206
  Transmission Date: 20070319
  Serious: Yes (Life-Threatening, Hospitalization)
  Sender: FDA-Public Use
  Company Number: None

PATIENT
  Age: 37 Year
  Sex: Female
  Weight: 61.2356 kg

DRUGS (1)
  1. LEXAPRO [Suspect]
     Indication: DEPRESSION
     Dosage: 10 DAILY PO
     Route: 048
     Dates: start: 20061101, end: 20061106

REACTIONS (7)
  - EATING DISORDER [None]
  - FEELING ABNORMAL [None]
  - HALLUCINATIONS, MIXED [None]
  - INCORRECT DOSE ADMINISTERED [None]
  - MEMORY IMPAIRMENT [None]
  - SUICIDE ATTEMPT [None]
  - WEIGHT DECREASED [None]
